FAERS Safety Report 13927205 (Version 3)
Quarter: 2017Q3

REPORT INFORMATION
  Report Type: Report from Study
  Country: CA (occurrence: CA)
  Receive Date: 20170831
  Receipt Date: 20170913
  Transmission Date: 20171127
  Serious: Yes (Other)
  Sender: FDA-Public Use
  Company Number: CA-009507513-1704CAN006251

PATIENT
  Age: 55 Year
  Sex: Female
  Weight: 70.5 kg

DRUGS (4)
  1. PEMBROLIZUMAB. [Suspect]
     Active Substance: PEMBROLIZUMAB
     Indication: NON-SMALL CELL LUNG CANCER
     Dosage: 140 MG, Q3W
     Route: 042
  2. PEMBROLIZUMAB. [Suspect]
     Active Substance: PEMBROLIZUMAB
     Dosage: 130 MG, Q3W; STRENGTH REPORTED AS 2 MG/KG
     Route: 042
     Dates: start: 20170322
  3. PEMBROLIZUMAB. [Suspect]
     Active Substance: PEMBROLIZUMAB
     Dosage: 130 MG, Q3W; STRENGTH: 2 MG/KG
     Route: 042
     Dates: start: 20170322
  4. PEMBROLIZUMAB. [Suspect]
     Active Substance: PEMBROLIZUMAB
     Dosage: 130 MG, Q3W; STRENGTH: 2 MG/KG
     Route: 042
     Dates: start: 20170322

REACTIONS (13)
  - Weight increased [Unknown]
  - Frequent bowel movements [Recovered/Resolved]
  - Feeding disorder [Unknown]
  - Drug prescribing error [Unknown]
  - Drug dose omission [Unknown]
  - Headache [Recovering/Resolving]
  - Pyrexia [Recovered/Resolved]
  - Vital functions abnormal [Unknown]
  - Labyrinthitis [Unknown]
  - Insomnia [Unknown]
  - Venous injury [Unknown]
  - Weight decreased [Unknown]
  - Inappropriate schedule of drug administration [Unknown]

NARRATIVE: CASE EVENT DATE: 2017
